FAERS Safety Report 15811585 (Version 1)
Quarter: 2019Q1

REPORT INFORMATION
  Report Type: Spontaneous
  Country: US (occurrence: US)
  Receive Date: 20190111
  Receipt Date: 20190111
  Transmission Date: 20190417
  Serious: No
  Sender: FDA-Public Use
  Company Number: US-PFIZER INC-2019013742

PATIENT
  Sex: Female

DRUGS (5)
  1. FRUCTOSE [Suspect]
     Active Substance: FRUCTOSE
     Dosage: UNK
  2. LANSOPRAZOLE. [Suspect]
     Active Substance: LANSOPRAZOLE
     Dosage: UNK
  3. XANTHAN GUM [Suspect]
     Active Substance: XANTHAN GUM
     Dosage: UNK
  4. MANNITOL. [Suspect]
     Active Substance: MANNITOL
     Dosage: UNK
  5. SORBITOL. [Suspect]
     Active Substance: SORBITOL
     Dosage: UNK

REACTIONS (2)
  - Drug hypersensitivity [Unknown]
  - Dyspnoea [Unknown]
